FAERS Safety Report 7347318-0 (Version None)
Quarter: 2011Q1

REPORT INFORMATION
  Report Type: 
  Country: None (occurrence: None)
  Receive Date: 20110311
  Receipt Date: 20110304
  Transmission Date: 20110831
  Serious: Yes (Life-Threatening, Hospitalization)
  Sender: FDA-Public Use
  Company Number: DE-ROCHE-749113

PATIENT
  Age: 56 Year
  Sex: Female
  Weight: 71 kg

DRUGS (6)
  1. KLACID [Suspect]
     Indication: PNEUMONIA
     Dosage: 2 X 500 MG
     Route: 042
     Dates: start: 20101007, end: 20101007
  2. LORAZEPAM [Suspect]
     Indication: PNEUMONIA
     Route: 042
     Dates: start: 20101007, end: 20101007
  3. ROCEPHIN [Suspect]
     Indication: PNEUMONIA
     Dosage: FORMULATION: INFUSION, BREAK ON 13 OCTOBER 2010
     Route: 042
     Dates: start: 20101007, end: 20101014
  4. ZIENAM [Suspect]
     Indication: PNEUMONIA
     Dosage: DOSE: 500 X 3 DAILY
     Route: 042
     Dates: start: 20101012, end: 20101029
  5. ALLOPURINOL [Suspect]
     Route: 048
     Dates: start: 20101007, end: 20101011
  6. LORAZEPAM [Suspect]
     Dosage: 1-2 MG DAILY, BREAKS: 11-13 AND 15-20 OCT 2010; ROUTE: ORAL.
     Route: 048
     Dates: start: 20101008, end: 20101107

REACTIONS (2)
  - RENAL FAILURE ACUTE [None]
  - HEPATITIS ACUTE [None]
